FAERS Safety Report 9606616 (Version 2)
Quarter: 2013Q4

REPORT INFORMATION
  Report Type: Spontaneous
  Country: US (occurrence: US)
  Receive Date: 20131008
  Receipt Date: 20131008
  Transmission Date: 20140711
  Serious: No
  Sender: FDA-Public Use
  Company Number: US-AMGEN-USASP2013038050

PATIENT
  Age: 82 Year
  Sex: Female
  Weight: 82.81 kg

DRUGS (10)
  1. PROLIA [Suspect]
     Indication: OSTEOPOROSIS
     Dosage: 60 UNK, Q6MO
     Route: 058
     Dates: start: 20130208, end: 20130423
  2. FORTICAL                           /00371903/ [Concomitant]
     Dosage: 200 IU, QD
  3. AMIODARONE [Concomitant]
     Dosage: 200 MG, QD
  4. CALTRATE                           /00944201/ [Concomitant]
     Dosage: 600 MG, UNK
  5. VITAMIN D                          /00107901/ [Concomitant]
     Dosage: 600 MG, BID
  6. TOPROL [Concomitant]
     Dosage: 50 MG, UNK
  7. LISINOPRIL [Concomitant]
     Dosage: 40 MG, QD
  8. ATIVAN [Concomitant]
     Dosage: 0.5 MG, BID
  9. LASIX                              /00032601/ [Concomitant]
     Dosage: 40 MG, UNK
  10. LORTAB                             /00607101/ [Concomitant]
     Dosage: UNK UNK, BID

REACTIONS (10)
  - Chest pain [Unknown]
  - Arthropathy [Unknown]
  - Bursitis [Unknown]
  - Rotator cuff syndrome [Unknown]
  - Antinuclear antibody positive [Unknown]
  - Osteoarthritis [Unknown]
  - Arthritis [Unknown]
  - Back pain [Unknown]
  - Musculoskeletal pain [Unknown]
  - Pain in extremity [Not Recovered/Not Resolved]
